FAERS Safety Report 25395112 (Version 1)
Quarter: 2025Q2

REPORT INFORMATION
  Report Type: Spontaneous
  Country: DE (occurrence: DE)
  Receive Date: 20250604
  Receipt Date: 20250604
  Transmission Date: 20250716
  Serious: Yes (Hospitalization, Other)
  Sender: RANBAXY
  Company Number: DE-SUN PHARMACEUTICAL INDUSTRIES LTD-2017R1-141204

PATIENT
  Age: 56 Year

DRUGS (2)
  1. WARFARIN [Suspect]
     Active Substance: WARFARIN
     Indication: Cardiac valve prosthesis user
     Route: 065
  2. WARFARIN [Suspect]
     Active Substance: WARFARIN
     Indication: Anticoagulant therapy

REACTIONS (3)
  - Arterial rupture [Unknown]
  - Haemothorax [Recovered/Resolved]
  - Atelectasis [Recovered/Resolved]
